FAERS Safety Report 18789034 (Version 2)
Quarter: 2021Q1

REPORT INFORMATION
  Report Type: Report from Study
  Country: US (occurrence: US)
  Receive Date: 20210126
  Receipt Date: 20210205
  Transmission Date: 20210419
  Serious: No
  Sender: FDA-Public Use
  Company Number: US-GILEAD-2020-0506523

PATIENT
  Age: 32 Year
  Sex: Female

DRUGS (8)
  1. ALBUTEROL [SALBUTAMOL SULFATE] [Concomitant]
     Active Substance: ALBUTEROL SULFATE
  2. ZENPEP [Concomitant]
     Active Substance: PANCRELIPASE AMYLASE\PANCRELIPASE LIPASE\PANCRELIPASE PROTEASE
  3. ASPIRIN [ACETYLSALICYLIC ACID] [Concomitant]
     Active Substance: ASPIRIN
  4. PULMOZYME [Concomitant]
     Active Substance: DORNASE ALFA
  5. TRIKAFTA [Concomitant]
     Active Substance: ELEXACAFTOR\IVACAFTOR\TEZACAFTOR
     Indication: PRODUCT USED FOR UNKNOWN INDICATION
     Dosage: UNK, 2 ORANGE TABLETS IN THE MORNING ON MONDAY AND THURSDAY
     Route: 065
  6. NOVOLIN N [Concomitant]
     Active Substance: INSULIN HUMAN
  7. NOVOLOG [Concomitant]
     Active Substance: INSULIN ASPART
  8. AZTREONAM LYSINE [Suspect]
     Active Substance: AZTREONAM LYSINE
     Indication: CYSTIC FIBROSIS LUNG
     Dosage: 1 DOSAGE FORM, TID, 28 DAYS ON, 28 DAYS OFF
     Route: 055
     Dates: start: 20140809

REACTIONS (2)
  - Hepatic enzyme increased [Not Recovered/Not Resolved]
  - Maternal exposure during pregnancy [Recovered/Resolved]
